FAERS Safety Report 11839813 (Version 1)
Quarter: 2015Q4

REPORT INFORMATION
  Report Type: Report from Study
  Country: ES (occurrence: ES)
  Receive Date: 20151216
  Receipt Date: 20151216
  Transmission Date: 20160305
  Serious: Yes (Other)
  Sender: FDA-Public Use
  Company Number: ES-SUN PHARMACEUTICAL INDUSTRIES LTD-2015R1-107668

PATIENT

DRUGS (1)
  1. PROPRANOLOL [Suspect]
     Active Substance: PROPRANOLOL\PROPRANOLOL HYDROCHLORIDE
     Indication: INFANTILE HAEMANGIOMA
     Route: 065

REACTIONS (2)
  - Disease recurrence [Unknown]
  - Bradycardia [Unknown]
